FAERS Safety Report 5989685-6 (Version None)
Quarter: 2008Q4

REPORT INFORMATION
  Report Type: 
  Country: None (occurrence: None)
  Receive Date: 20081210
  Receipt Date: 20081208
  Transmission Date: 20090506
  Serious: Yes (Hospitalization)
  Sender: FDA-Public Use
  Company Number: US-ROXANE LABORATORIES, INC.-2008-RO-00375RO

PATIENT
  Sex: Male
  Weight: 79 kg

DRUGS (15)
  1. PREDNISONE TAB [Suspect]
     Indication: PROSTATE CANCER
     Dosage: 10MG
     Route: 048
     Dates: start: 20081029
  2. SUNITINIB MALATE [Suspect]
     Indication: PROSTATE CANCER
     Dosage: 37.5MG
     Route: 048
     Dates: start: 20071029, end: 20071112
  3. TAXOTERE [Suspect]
     Indication: PROSTATE CANCER
     Route: 042
     Dates: start: 20071029, end: 20071029
  4. ASPIRIN [Concomitant]
     Route: 048
     Dates: start: 20071016, end: 20071119
  5. LIPITOR [Concomitant]
     Route: 048
     Dates: start: 20010101
  6. GALENIC/CALCIUM/VITAMIN D [Concomitant]
     Route: 048
     Dates: start: 20070301
  7. DOCUSATE [Concomitant]
     Route: 048
     Dates: start: 20070910
  8. VITAMIN D [Concomitant]
     Route: 048
     Dates: start: 20070301, end: 20071119
  9. MULTI-VITAMINS [Concomitant]
     Route: 048
     Dates: start: 20070301, end: 20071119
  10. VITAMIN B6 [Concomitant]
     Route: 048
     Dates: start: 20070301
  11. VITAMIN E [Concomitant]
     Route: 048
     Dates: start: 20070301, end: 20071119
  12. MILK OF MAGNESIA [Concomitant]
     Route: 048
     Dates: start: 20070924
  13. ZANTAC [Concomitant]
     Route: 048
     Dates: start: 20071029
  14. BUTENAFINE HYDROCHLORIDE [Concomitant]
     Route: 061
     Dates: start: 20071024
  15. INFLUENZA VACCINE [Concomitant]
     Route: 030
     Dates: start: 20071029, end: 20071029

REACTIONS (1)
  - FEBRILE NEUTROPENIA [None]
